FAERS Safety Report 19946578 (Version 1)
Quarter: 2021Q4

REPORT INFORMATION
  Report Type: Spontaneous
  Country: NL (occurrence: NL)
  Receive Date: 20211013
  Receipt Date: 20211013
  Transmission Date: 20220303
  Serious: Yes (Life-Threatening, Hospitalization, Other)
  Sender: FDA-Public Use
  Company Number: NL-LRB-00671255

PATIENT
  Age: 28 Year
  Sex: Male
  Weight: 110 kg

DRUGS (3)
  1. CLOZAPINE [Suspect]
     Active Substance: CLOZAPINE
     Indication: Schizophrenia
     Dosage: UNK(1DD450MG)
     Route: 065
     Dates: start: 2019, end: 20210717
  2. COMIRNATY [Suspect]
     Active Substance: TOZINAMERAN
     Indication: COVID-19 immunisation
     Dosage: 1 DOSAGE FORM
     Route: 065
     Dates: start: 20210704
  3. ARIPIPRAZOLE [Concomitant]
     Active Substance: ARIPIPRAZOLE
     Indication: Product used for unknown indication
     Dosage: UNK(TABLET, 2,5 MG (MILLIGRAM))
     Route: 065

REACTIONS (12)
  - Depressed level of consciousness [Recovering/Resolving]
  - Rhabdomyolysis [Recovering/Resolving]
  - Muscular weakness [Unknown]
  - Pulmonary embolism [Unknown]
  - Acute kidney injury [Unknown]
  - Pelvic venous thrombosis [Unknown]
  - Confusional state [Unknown]
  - Fatigue [Recovering/Resolving]
  - Ileus [Recovered/Resolved]
  - Drug interaction [Unknown]
  - Malaise [Recovering/Resolving]
  - Myalgia [Recovered/Resolved]

NARRATIVE: CASE EVENT DATE: 20210717
